FAERS Safety Report 9059932 (Version 1)
Quarter: 2013Q1

REPORT INFORMATION
  Report Type: Spontaneous
  Country: US (occurrence: None)
  Receive Date: 20130207
  Receipt Date: 20130207
  Transmission Date: 20140127
  Serious: Yes (Hospitalization)
  Sender: FDA-Public Use
  Company Number: None

PATIENT
  Age: 55 Year
  Sex: Male
  Weight: 135 kg

DRUGS (1)
  1. ZOLPIDEM [Suspect]
     Route: 048
     Dates: start: 20110916, end: 20110916

REACTIONS (6)
  - Speech disorder [None]
  - Anxiety [None]
  - Paranoia [None]
  - Insomnia [None]
  - Aggression [None]
  - Aggression [None]
